FAERS Safety Report 11980290 (Version 3)
Quarter: 2016Q1

REPORT INFORMATION
  Report Type: Report from Study
  Country: CA (occurrence: CA)
  Receive Date: 20160129
  Receipt Date: 20160216
  Transmission Date: 20160526
  Serious: Yes (Death, Life-Threatening, Hospitalization, Disabling, Other)
  Sender: FDA-Public Use
  Company Number: CA-GILEAD-2016-0194737

PATIENT
  Age: 61 Year
  Sex: Male

DRUGS (6)
  1. RIFAXIMINE [Concomitant]
     Indication: HEPATITIS C
     Dosage: 550 MG, UNK
     Route: 048
     Dates: start: 20151210
  2. LACTULOSE. [Concomitant]
     Active Substance: LACTULOSE
     Indication: HEPATITIS C
     Dosage: 30 MG, UNK
     Route: 048
  3. SPIRONOLACTONE. [Concomitant]
     Active Substance: SPIRONOLACTONE
     Indication: HEPATITIS C
     Dosage: 100 MG, UNK
     Route: 048
  4. LEDIPASVIR/SOFOSBUVIR [Suspect]
     Active Substance: LEDIPASVIR\SOFOSBUVIR
     Indication: CHRONIC HEPATITIS C
     Dosage: 1 DF, QD
     Route: 048
     Dates: start: 20151210, end: 20160114
  5. NADOLOL. [Concomitant]
     Active Substance: NADOLOL
     Indication: HEPATITIS C
     Dosage: 40 MG, UNK
     Route: 048
  6. IBAVYR [Suspect]
     Active Substance: RIBAVIRIN
     Indication: CHRONIC HEPATITIS C
     Dosage: 1200 MG, QD
     Route: 048
     Dates: start: 20151210

REACTIONS (5)
  - Gastrointestinal haemorrhage [Fatal]
  - Hepatocellular carcinoma [Unknown]
  - Hepatic mass [Fatal]
  - Hepatic failure [Unknown]
  - Oesophageal varices haemorrhage [Fatal]

NARRATIVE: CASE EVENT DATE: 20151210
